FAERS Safety Report 22193136 (Version 1)
Quarter: 2023Q2

REPORT INFORMATION
  Report Type: Spontaneous
  Country: US (occurrence: None)
  Receive Date: 20230410
  Receipt Date: 20230410
  Transmission Date: 20230721
  Serious: Yes (Hospitalization)
  Sender: FDA-Public Use
  Company Number: None

PATIENT
  Age: 59 Year
  Sex: Female

DRUGS (1)
  1. XELODA [Suspect]
     Active Substance: CAPECITABINE
     Dosage: FREQUENCY : TWICE A DAY;?
     Route: 048
     Dates: end: 20230402

REACTIONS (4)
  - Confusional state [None]
  - Therapy interrupted [None]
  - Depressed level of consciousness [None]
  - Anxiety [None]

NARRATIVE: CASE EVENT DATE: 20230410
